FAERS Safety Report 4296186-2 (Version None)
Quarter: 2004Q1

REPORT INFORMATION
  Report Type: 
  Country: None (occurrence: None)
  Receive Date: 20040217
  Receipt Date: 20030911
  Transmission Date: 20041129
  Serious: Yes (Other)
  Sender: FDA-Public Use
  Company Number: US-GLAXOSMITHKLINE-A0425514A

PATIENT
  Age: 41 Year
  Sex: Female
  Weight: 72.7 kg

DRUGS (9)
  1. LAMICTAL [Suspect]
     Indication: EPILEPSY
     Dosage: 150MG TWICE PER DAY
     Route: 048
     Dates: start: 20030801
  2. FOLIC ACID [Concomitant]
  3. FLEXERIL [Suspect]
  4. TEGRETOL [Concomitant]
     Dates: end: 20030801
  5. SYNTHROID [Concomitant]
     Indication: HYPOTHYROIDISM
  6. LESCOL XL [Concomitant]
     Indication: BLOOD CHOLESTEROL INCREASED
     Dosage: 80MG AT NIGHT
     Route: 048
  7. INSULIN [Concomitant]
  8. DIFLUCAN [Concomitant]
     Indication: FUNGAL INFECTION
  9. KEPPRA [Concomitant]

REACTIONS (4)
  - CONVULSION [None]
  - DRUG INEFFECTIVE [None]
  - LOSS OF CONSCIOUSNESS [None]
  - SKIN HYPOPIGMENTATION [None]
